FAERS Safety Report 5079562-X (Version None)
Quarter: 2006Q3

REPORT INFORMATION
  Report Type: 
  Country: None (occurrence: None)
  Receive Date: 20060811
  Receipt Date: 20060811
  Transmission Date: 20061208
  Serious: Yes (Hospitalization)
  Sender: FDA-Public Use
  Company Number: None

PATIENT
  Sex: Male
  Weight: 169.9 kg

DRUGS (2)
  1. ENALAPRIL [Suspect]
     Dosage: 10MG  BID  PO
     Route: 048
  2. VALSARTAN [Suspect]
     Dosage: 160MG  BID  PO
     Route: 048

REACTIONS (2)
  - ANGIONEUROTIC OEDEMA [None]
  - RESPIRATORY FAILURE [None]
